FAERS Safety Report 9758084 (Version 2)
Quarter: 2014Q1

REPORT INFORMATION
  Report Type: Spontaneous
  Country: US (occurrence: US)
  Receive Date: 20131216
  Receipt Date: 20140307
  Transmission Date: 20141002
  Serious: Yes (Hospitalization)
  Sender: FDA-Public Use
  Company Number: US-JNJFOC-20131204780

PATIENT
  Age: 42 Year
  Sex: Male
  Weight: 122.47 kg

DRUGS (3)
  1. STELARA [Suspect]
     Indication: PSORIASIS
     Route: 058
     Dates: start: 20131204
  2. STELARA [Suspect]
     Indication: PSORIASIS
     Route: 058
     Dates: start: 20110408
  3. TACLONEX [Concomitant]
     Indication: PSORIASIS
     Dosage: DROPS DAILY AS NECESSARY
     Route: 065
     Dates: start: 20090524

REACTIONS (2)
  - Subcutaneous abscess [Recovered/Resolved]
  - Incorrect dose administered [Not Recovered/Not Resolved]
